FAERS Safety Report 10289517 (Version 2)
Quarter: 2014Q3

REPORT INFORMATION
  Report Type: Report from Study
  Country: ZA (occurrence: ZA)
  Receive Date: 20140710
  Receipt Date: 20140925
  Transmission Date: 20150326
  Serious: Yes (Life-Threatening, Hospitalization)
  Sender: FDA-Public Use
  Company Number: PHHY2014ZA084597

PATIENT
  Sex: Female

DRUGS (4)
  1. ACLASTA [Suspect]
     Active Substance: ZOLEDRONIC ACID
     Dosage: 5 MG/100ML
     Route: 042
     Dates: start: 2013
  2. PENICILLIN NOS [Suspect]
     Active Substance: PENICILLIN
     Dosage: UNK UKN, UNK
  3. ACLASTA [Suspect]
     Active Substance: ZOLEDRONIC ACID
     Indication: OSTEOPOROSIS
     Dosage: 5 MG/100ML
     Route: 042
     Dates: start: 201107
  4. ACLASTA [Suspect]
     Active Substance: ZOLEDRONIC ACID
     Dosage: 5 MG/100ML
     Route: 042
     Dates: start: 201207

REACTIONS (4)
  - Bronchitis [Unknown]
  - Anaphylactic shock [Unknown]
  - Sepsis [Unknown]
  - Staphylococcal infection [Unknown]
